FAERS Safety Report 8176511-2 (Version None)
Quarter: 2012Q1

REPORT INFORMATION
  Report Type: 
  Country: None (occurrence: None)
  Receive Date: 20120301
  Receipt Date: 20120227
  Transmission Date: 20120608
  Serious: Yes (Hospitalization, Other)
  Sender: FDA-Public Use
  Company Number: US-PFIZER INC-2012051553

PATIENT
  Sex: Female
  Weight: 78 kg

DRUGS (9)
  1. METOPROLOL [Concomitant]
     Dosage: 50 MG, 2X/DAY
  2. POTASSIUM [Concomitant]
     Dosage: 10 MG, 2X/DAY
  3. MAGNESIUM [Concomitant]
     Dosage: 40 MG, 1X/DAY
  4. MULTI-VITAMINS [Concomitant]
     Dosage: UNK
  5. TIKOSYN [Suspect]
     Indication: ATRIAL FIBRILLATION
     Dosage: 250 UG, 2X/DAY
     Route: 048
     Dates: start: 20120123
  6. METFORMIN HCL [Suspect]
     Indication: DIABETES MELLITUS
     Dosage: 1000 MG, 2X/DAY
     Route: 048
  7. METFORMIN HCL [Suspect]
     Dosage: UNK
     Route: 048
     Dates: end: 20120218
  8. ICAPS [Concomitant]
     Indication: MACULAR DEGENERATION
     Dosage: UNK
  9. PROTONIX [Concomitant]
     Dosage: 40 MG, 1X/DAY

REACTIONS (4)
  - NASOPHARYNGITIS [None]
  - HEART RATE IRREGULAR [None]
  - BLOOD GLUCOSE DECREASED [None]
  - DIVERTICULITIS [None]
